FAERS Safety Report 4866674-6 (Version None)
Quarter: 2005Q4

REPORT INFORMATION
  Report Type: 
  Country: None (occurrence: None)
  Receive Date: 20051221
  Receipt Date: 20051212
  Transmission Date: 20060501
  Serious: Yes (Hospitalization)
  Sender: FDA-Public Use
  Company Number: 2005167990

PATIENT
  Age: 75 Year
  Sex: Male

DRUGS (8)
  1. ALDACTONE [Suspect]
     Indication: ILL-DEFINED DISORDER
     Dosage: 50 MG (50 MG, DAILY), ORAL
     Route: 048
     Dates: end: 20050625
  2. METFORMIN HCL [Concomitant]
  3. SIMVASTATIN [Concomitant]
  4. PROPRANOLOL HYDRCHLORIDE (PROPRANOLOL HYDROCHLORIDE) [Concomitant]
  5. ACARBOSE (ACARBOSE) [Concomitant]
  6. DIGOXIN [Concomitant]
  7. PANTOPRAZOLE SODIUM [Concomitant]
  8. FLUINDIONE (FLUINDIONE) [Concomitant]

REACTIONS (18)
  - ACCIDENTAL OVERDOSE [None]
  - BLOOD BILIRUBIN INCREASED [None]
  - BLOOD GLUCOSE INCREASED [None]
  - BLOOD SODIUM DECREASED [None]
  - BUNDLE BRANCH BLOCK LEFT [None]
  - ELECTROCARDIOGRAM QRS COMPLEX PROLONGED [None]
  - ELECTROCARDIOGRAM T WAVE INVERSION [None]
  - HAEMOGLOBIN DECREASED [None]
  - HYPERHIDROSIS [None]
  - HYPERKALAEMIA [None]
  - MALAISE [None]
  - MITRAL VALVE INCOMPETENCE [None]
  - NAUSEA [None]
  - PLATELET COUNT DECREASED [None]
  - PULMONARY HYPERTENSION [None]
  - RENAL FAILURE [None]
  - VENTRICULAR HYPERTROPHY [None]
  - VOMITING [None]
